FAERS Safety Report 5980204-7 (Version None)
Quarter: 2008Q4

REPORT INFORMATION
  Report Type: 
  Country: None (occurrence: None)
  Receive Date: 20081205
  Receipt Date: 20081126
  Transmission Date: 20090506
  Serious: Yes (Death, Hospitalization)
  Sender: FDA-Public Use
  Company Number: GB-BAXTER-2008BH013068

PATIENT
  Age: 18 Year
  Sex: Female
  Weight: 55 kg

DRUGS (6)
  1. GENTAMICIN [Suspect]
     Indication: LOWER RESPIRATORY TRACT INFECTION
     Dosage: DOSE UNIT:UNKNOWN
     Route: 065
  2. ACYCLOVIR [Suspect]
     Indication: MENINGITIS
     Dosage: DOSE UNIT:UNKNOWN
     Route: 065
  3. CEFOTAXIME SODIUM [Suspect]
     Indication: MENINGITIS
     Dosage: DOSE UNIT:UNKNOWN
     Route: 065
  4. PHENYTOIN [Suspect]
     Indication: CONVULSION
     Dosage: DOSE UNIT:UNKNOWN
     Route: 065
  5. TAZOCIN [Suspect]
     Indication: LOWER RESPIRATORY TRACT INFECTION
     Dosage: DOSE UNIT:UNKNOWN
     Route: 065
  6. PREDNISOLONE [Concomitant]
     Indication: DRUG USE FOR UNKNOWN INDICATION

REACTIONS (1)
  - TOXIC EPIDERMAL NECROLYSIS [None]
